FAERS Safety Report 16479283 (Version 1)
Quarter: 2019Q2

REPORT INFORMATION
  Report Type: Report from Study
  Country: NL (occurrence: NL)
  Receive Date: 20190626
  Receipt Date: 20190626
  Transmission Date: 20190711
  Serious: Yes (Hospitalization)
  Sender: FDA-Public Use
  Company Number: NL-VERTEX PHARMACEUTICALS-2019-005759

PATIENT
  Age: 13 Year
  Sex: Female

DRUGS (1)
  1. ORKAMBI [Suspect]
     Active Substance: IVACAFTOR\LUMACAFTOR
     Indication: CYSTIC FIBROSIS
     Dosage: UNK
     Route: 048

REACTIONS (5)
  - Vomiting [Unknown]
  - Infective pulmonary exacerbation of cystic fibrosis [Unknown]
  - Depressed mood [Unknown]
  - Weight gain poor [Not Recovered/Not Resolved]
  - Forced expiratory volume decreased [Unknown]
